FAERS Safety Report 7940911-3 (Version None)
Quarter: 2011Q4

REPORT INFORMATION
  Report Type: 
  Country: None (occurrence: None)
  Receive Date: 20111128
  Receipt Date: 20111118
  Transmission Date: 20120403
  Serious: Yes (Other)
  Sender: FDA-Public Use
  Company Number: AR-JNJFOC-20111108796

PATIENT
  Age: 59 Year
  Sex: Female

DRUGS (3)
  1. ANTIALLERGIC DRUGS [Concomitant]
     Indication: PREMEDICATION
     Route: 065
     Dates: start: 20111117
  2. REMICADE [Suspect]
     Indication: RHEUMATOID ARTHRITIS
     Route: 042
     Dates: start: 20111117
  3. REMICADE [Suspect]
     Route: 042
     Dates: start: 20100901

REACTIONS (3)
  - INFUSION RELATED REACTION [None]
  - ADVERSE DRUG REACTION [None]
  - HYPERSENSITIVITY [None]
